FAERS Safety Report 24311287 (Version 1)
Quarter: 2024Q3

REPORT INFORMATION
  Report Type: Spontaneous
  Country: CA (occurrence: CA)
  Receive Date: 20240912
  Receipt Date: 20240912
  Transmission Date: 20241016
  Serious: Yes (Other)
  Sender: SANDOZ
  Company Number: CA-SANDOZ-SDZ2024CA079297

PATIENT
  Age: 77 Year
  Sex: Female

DRUGS (1)
  1. CEFTRIAXONE SODIUM [Suspect]
     Active Substance: CEFTRIAXONE SODIUM
     Indication: Cholelithiasis
     Dosage: 1 G
     Route: 041

REACTIONS (8)
  - Blood pressure increased [Unknown]
  - Chest discomfort [Unknown]
  - Erythema [Unknown]
  - Heart rate increased [Unknown]
  - Resuscitation [Unknown]
  - Oxygen saturation decreased [Unknown]
  - Pruritus [Unknown]
  - Rash [Unknown]
